FAERS Safety Report 10257882 (Version 1)
Quarter: 2014Q2

REPORT INFORMATION
  Report Type: Report from Study
  Country: CA (occurrence: CA)
  Receive Date: 20140625
  Receipt Date: 20140625
  Transmission Date: 20141212
  Serious: Yes (Hospitalization, Other)
  Sender: FDA-Public Use
  Company Number: CA-BRISTOL-MYERS SQUIBB COMPANY-20704466

PATIENT
  Age: 62 Year
  Sex: Female

DRUGS (9)
  1. ORENCIA [Suspect]
     Indication: RHEUMATOID ARTHRITIS
     Dosage: 1 DF= 750 NO UNITS
     Dates: start: 20120822, end: 20140404
  2. METHOTREXATE [Concomitant]
  3. ARTHROTEC [Concomitant]
  4. SYNTHROID [Concomitant]
  5. ADVAIR [Concomitant]
  6. VENTOLIN [Concomitant]
  7. EFFEXOR [Concomitant]
  8. TEMAZEPAM [Concomitant]
  9. VITAMINS [Concomitant]

REACTIONS (2)
  - Arthropathy [Recovered/Resolved]
  - Tooth abscess [Recovered/Resolved]
